FAERS Safety Report 24806380 (Version 1)
Quarter: 2025Q1

REPORT INFORMATION
  Report Type: Report from Study
  Country: US (occurrence: US)
  Receive Date: 20250103
  Receipt Date: 20250103
  Transmission Date: 20250408
  Serious: Yes (Other)
  Sender: SUNOVION
  Company Number: US-SMPA-2024SPA006776

PATIENT

DRUGS (2)
  1. ORGOVYX [Suspect]
     Active Substance: RELUGOLIX
     Indication: Prostate cancer
     Dosage: 360 MG, SINGLE
     Route: 048
     Dates: start: 20230204, end: 20230204
  2. ORGOVYX [Suspect]
     Active Substance: RELUGOLIX
     Dosage: 120 MG, QD
     Route: 048
     Dates: start: 20230205

REACTIONS (7)
  - Dementia [Unknown]
  - Blood pressure abnormal [Unknown]
  - Prostatic specific antigen increased [Unknown]
  - Fall [Unknown]
  - Ligament sprain [Unknown]
  - Hot flush [Unknown]
  - Fatigue [Unknown]
